FAERS Safety Report 25738764 (Version 1)
Quarter: 2025Q3

REPORT INFORMATION
  Report Type: Report from Study
  Country: PK (occurrence: PK)
  Receive Date: 20250829
  Receipt Date: 20250829
  Transmission Date: 20251020
  Serious: Yes (Other)
  Sender: ROCHE
  Company Number: PK-ROCHE-10000370479

PATIENT
  Age: 56 Year
  Sex: Female

DRUGS (1)
  1. AVASTIN [Suspect]
     Active Substance: BEVACIZUMAB
     Indication: Ovarian cancer
     Route: 042
     Dates: start: 20230613

REACTIONS (3)
  - Ovarian cancer [Unknown]
  - Carbohydrate antigen 125 increased [Unknown]
  - Ascites [Unknown]

NARRATIVE: CASE EVENT DATE: 20250807
